FAERS Safety Report 22102654 (Version 2)
Quarter: 2023Q2

REPORT INFORMATION
  Report Type: Report from Study
  Country: CA (occurrence: CA)
  Receive Date: 20230316
  Receipt Date: 20230516
  Transmission Date: 20230722
  Serious: Yes (Hospitalization)
  Sender: FDA-Public Use
  Company Number: CA-PFIZER INC-PV202300045290

PATIENT
  Age: 67 Year
  Sex: Female
  Weight: 80.4 kg

DRUGS (18)
  1. GEMCITABINE HYDROCHLORIDE [Suspect]
     Active Substance: GEMCITABINE HYDROCHLORIDE
     Indication: Neoplasm
     Dosage: 800 MG/M2, EVERY 21 DAYS, INJECTION
     Route: 042
     Dates: start: 20221102
  2. GEMCITABINE HYDROCHLORIDE [Suspect]
     Active Substance: GEMCITABINE HYDROCHLORIDE
     Indication: Endometrial cancer
     Dosage: 600 MG/M2, EVERY 21 DAYS, INJECTION
     Route: 042
     Dates: start: 20221123
  3. RP-6306 [Suspect]
     Active Substance: RP-6306
     Indication: Neoplasm
     Dosage: CAPSULE, HARD, 120 MG, 2X/DAY
     Route: 048
     Dates: start: 20221102
  4. RP-6306 [Suspect]
     Active Substance: RP-6306
     Indication: Endometrial cancer
  5. VITAMIN D3 [Concomitant]
     Active Substance: CHOLECALCIFEROL
     Indication: Routine health maintenance
     Dosage: 1000 IU, 2X/DAY
     Dates: start: 2017
  6. CANNABOMEGA [Concomitant]
     Indication: Routine health maintenance
     Dosage: 1200 MG, 1X/DAY
     Dates: start: 2017
  7. CALCIUM WITH VITAMIN D [CALCIUM CARBONATE;COLECALCIFEROL] [Concomitant]
     Indication: Routine health maintenance
     Dosage: 800 IU, 1X/DAY
     Dates: start: 2012
  8. MINERALS\VITAMINS [Concomitant]
     Active Substance: MINERALS\VITAMINS
     Indication: Routine health maintenance
     Dosage: 2 DF, 1X/DAY
     Dates: start: 2017
  9. METOCLOPRAMIDE HYDROCHLORIDE [Concomitant]
     Active Substance: METOCLOPRAMIDE HYDROCHLORIDE
     Indication: Vomiting
     Dosage: 10 MG, 2X/DAY
     Dates: start: 20221102
  10. DEXAMETHASONE [Concomitant]
     Active Substance: DEXAMETHASONE
     Indication: Prophylaxis
     Dosage: 8 MG, AS NEEDED
     Dates: start: 20221102
  11. TYLENOL [Concomitant]
     Active Substance: ACETAMINOPHEN
     Indication: Headache
     Dosage: 1000 MG, EVERY 6 HOURS
     Dates: start: 20221102
  12. HYDROMORPHONE HYDROCHLORIDE [Concomitant]
     Active Substance: HYDROMORPHONE HYDROCHLORIDE
     Indication: Myalgia
     Dosage: 2 MG, EVERY 4 HRS
     Dates: start: 20221105
  13. SENOKOT [Concomitant]
     Active Substance: SENNOSIDES
     Indication: Constipation
     Dosage: 1 IU, 1X/DAY
     Dates: start: 20221108
  14. ABREVA [Concomitant]
     Active Substance: DOCOSANOL
     Indication: Oral herpes
     Dosage: 1 DF, 1X/DAY
     Dates: start: 20230104
  15. DEXTROMETHORPHAN HYDROBROMIDE [Concomitant]
     Active Substance: DEXTROMETHORPHAN HYDROBROMIDE
     Indication: Cough
     Dosage: 3 MG, 3X/DAY
     Dates: start: 20230105
  16. OLODATEROL HYDROCHLORIDE\TIOTROPIUM BROMIDE MONOHYDRATE [Concomitant]
     Active Substance: OLODATEROL HYDROCHLORIDE\TIOTROPIUM BROMIDE MONOHYDRATE
     Indication: Dyspnoea
     Dosage: 2.5 UG, 2X/DAY, AEROSOL
     Dates: start: 20230127
  17. AKABUTUS MOUTHWASH [Concomitant]
     Indication: Candida infection
     Dosage: SUSPENSION, 15 ML, EVERY 4 HRS
     Dates: start: 20230131, end: 20230207
  18. COLCHICINE [Concomitant]
     Active Substance: COLCHICINE
     Indication: Pericardial effusion
     Dosage: 0.6 MG, 2X/DAY
     Dates: start: 20230208

REACTIONS (1)
  - Cholecystitis [Recovered/Resolved]

NARRATIVE: CASE EVENT DATE: 20230301
